FAERS Safety Report 9158055 (Version 2)
Quarter: 2013Q1

REPORT INFORMATION
  Report Type: Spontaneous
  Country: JP (occurrence: None)
  Receive Date: 20130213
  Receipt Date: 20130305
  Transmission Date: 20140127
  Serious: Yes (Other)
  Sender: FDA-Public Use
  Company Number: SPI201300075

PATIENT
  Age: 63 Year
  Sex: Female

DRUGS (7)
  1. AMITIZA [Suspect]
     Indication: CONSTIPATION
     Dosage: 24 MCG, QD, ORAL
     Route: 048
     Dates: start: 20121201, end: 20121204
  2. MAGMITT (MAGNESIUM OXIDE) [Concomitant]
     Indication: CONSTIPATION
     Dosage: 990 MG, QD, ORAL
     Route: 048
     Dates: end: 20121217
  3. LIVALO [Concomitant]
     Indication: HYPERLIPIDAEMIA
     Dosage: 2 MG, QD, ORAL
     Route: 048
     Dates: end: 20121217
  4. ZETIA (EZETIMIBE) [Concomitant]
     Indication: HYPERLIPIDAEMIA
     Dosage: 10 MG, QD, ORAL
     Route: 048
     Dates: end: 20121217
  5. ALFACALCIDOL [Concomitant]
     Dosage: 1.0 MCG, UNK, ORAL
     Route: 048
     Dates: end: 20121217
  6. MUCOSTA [Concomitant]
     Indication: GASTRITIS
     Dosage: 300 MG, QD, ORAL
     Route: 048
     Dates: end: 20121217
  7. RIVAROXABAN [Concomitant]

REACTIONS (8)
  - Aspartate aminotransferase increased [None]
  - Gamma-glutamyltransferase increased [None]
  - Drug ineffective [None]
  - Alanine aminotransferase increased [None]
  - Blood alkaline phosphatase increased [None]
  - Leucine aminopeptidase increased [None]
  - Blood cholesterol increased [None]
  - Low density lipoprotein increased [None]
